FAERS Safety Report 6613968-X (Version None)
Quarter: 2010Q1

REPORT INFORMATION
  Report Type: 
  Country: None (occurrence: None)
  Receive Date: 20100225
  Receipt Date: 20090226
  Transmission Date: 20100710
  Serious: Yes (Hospitalization)
  Sender: FDA-Public Use
  Company Number: 533398

PATIENT
  Sex: Female
  Weight: 59 kg

DRUGS (1)
  1. ACCUTANE [Suspect]
     Indication: ACNE
     Dosage: 40 MG 1 PER DAY
     Dates: start: 19930501, end: 19940301

REACTIONS (10)
  - ACNE [None]
  - ANAEMIA [None]
  - ANXIETY [None]
  - COLITIS ULCERATIVE [None]
  - DEPRESSION [None]
  - INFLAMMATORY BOWEL DISEASE [None]
  - JOINT STIFFNESS [None]
  - OVARIAN CYST [None]
  - POUCHITIS [None]
  - RHEUMATOID ARTHRITIS [None]
